FAERS Safety Report 10653680 (Version 1)
Quarter: 2014Q4

REPORT INFORMATION
  Report Type: Spontaneous
  Country: NL (occurrence: NL)
  Receive Date: 20141216
  Receipt Date: 20141216
  Transmission Date: 20150529
  Serious: Yes (Life-Threatening, Hospitalization)
  Sender: FDA-Public Use
  Company Number: NL-ASTRAZENECA-2014SE94388

PATIENT
  Age: 18599 Day
  Sex: Male
  Weight: 58 kg

DRUGS (6)
  1. VESICARE [Suspect]
     Active Substance: SOLIFENACIN SUCCINATE
     Indication: BLADDER PAIN
     Route: 048
     Dates: start: 20140910, end: 20141128
  2. DICLOFENAC-NATRIUM [Concomitant]
     Active Substance: DICLOFENAC SODIUM
     Route: 048
     Dates: start: 20140801, end: 20141116
  3. PROPRANOLOL [Suspect]
     Active Substance: PROPRANOLOL\PROPRANOLOL HYDROCHLORIDE
     Indication: PRODUCT USED FOR UNKNOWN INDICATION
     Route: 048
     Dates: start: 19910101
  4. VESICARE [Suspect]
     Active Substance: SOLIFENACIN SUCCINATE
     Indication: BLADDER PAIN
     Route: 048
     Dates: start: 20140910, end: 20141128
  5. OMEPRAZOL [Suspect]
     Active Substance: OMEPRAZOLE
     Indication: GASTROOESOPHAGEAL REFLUX DISEASE
     Route: 048
     Dates: start: 20010401
  6. LAXEERDRANK LACTULOSE [Suspect]
     Active Substance: LACTULOSE
     Indication: CONSTIPATION
     Route: 048
     Dates: start: 20140810

REACTIONS (3)
  - Constipation [Not Recovered/Not Resolved]
  - Colitis [Not Recovered/Not Resolved]
  - Delirium [Not Recovered/Not Resolved]

NARRATIVE: CASE EVENT DATE: 20140910
